FAERS Safety Report 8312749-9 (Version None)
Quarter: 2012Q2

REPORT INFORMATION
  Report Type: 
  Country: None (occurrence: None)
  Receive Date: 20120426
  Receipt Date: 20120412
  Transmission Date: 20120825
  Serious: Yes (Death)
  Sender: FDA-Public Use
  Company Number: BR-AMGEN-BRASP2012024439

PATIENT
  Age: 61 Year
  Sex: Female
  Weight: 57.959 kg

DRUGS (2)
  1. ENBREL [Suspect]
     Indication: RHEUMATOID ARTHRITIS
     Dosage: 50 MG, ONCE WEEKLY
     Route: 058
     Dates: start: 20100401
  2. PREDNISONE [Concomitant]
     Dosage: UNK UNK, UNK

REACTIONS (2)
  - INFARCTION [None]
  - RESPIRATORY FAILURE [None]
